FAERS Safety Report 14571265 (Version 2)
Quarter: 2018Q1

REPORT INFORMATION
  Report Type: Other
  Country: DE (occurrence: DE)
  Receive Date: 20180226
  Receipt Date: 20180321
  Transmission Date: 20180509
  Serious: Yes (Other)
  Sender: FDA-Public Use
  Company Number: DE-ASTELLAS-2017US052837

PATIENT
  Sex: Male

DRUGS (9)
  1. MIRABEGRON [Suspect]
     Active Substance: MIRABEGRON
     Indication: HYPERTONIC BLADDER
     Route: 048
     Dates: start: 20171020
  2. FLUTIFORM [Concomitant]
     Active Substance: FLUTICASONE PROPIONATE\FORMOTEROL FUMARATE
     Indication: PRODUCT USED FOR UNKNOWN INDICATION
     Dosage: 125 MG, FOR MANY YEARS 2 X 1 PUFF
     Route: 055
  3. LYRICA [Concomitant]
     Active Substance: PREGABALIN
     Indication: PRODUCT USED FOR UNKNOWN INDICATION
     Dosage: 75 MG EVERY 12 HOURS, FOR MANY YEARS 2X1
     Route: 048
  4. TAMSULOSIN [Concomitant]
     Active Substance: TAMSULOSIN
     Indication: PRODUCT USED FOR UNKNOWN INDICATION
     Dosage: 0.4 MG, (1X1) FOR MANY YEARS 1X1
     Route: 048
  5. ASPIRIN. [Concomitant]
     Active Substance: ASPIRIN
     Indication: PROPHYLAXIS
     Dosage: 100 MG, ONCE DAILY LONG-TIME (FOR MANY YEARS), 1X1
     Route: 048
  6. TIANEURAX [Concomitant]
     Active Substance: TIANEPTINE SODIUM
     Indication: DEPRESSION
  7. INEGY [Concomitant]
     Active Substance: EZETIMIBE\SIMVASTATIN
     Indication: PRODUCT USED FOR UNKNOWN INDICATION
     Dosage: 1 DF (10/40 MG), ONCE DAILY (1X1)
     Route: 048
  8. BEROTEC N [Concomitant]
     Indication: PRODUCT USED FOR UNKNOWN INDICATION
     Dosage: 100 (UNKNOWN UNIT)FOR MANY YEARS UNK UNK, UNKNOWN FREQ.
     Route: 055
  9. TIANEURAX [Concomitant]
     Active Substance: TIANEPTINE SODIUM
     Indication: CEREBROVASCULAR ACCIDENT
     Dosage: 12.5 (UNKNOWN UNITS), 2X1, SINCE 1.5 YEARS
     Route: 048

REACTIONS (10)
  - Blood pressure increased [Not Recovered/Not Resolved]
  - Condition aggravated [Recovered/Resolved]
  - Anxiety [Not Recovered/Not Resolved]
  - Listless [Recovered/Resolved]
  - Tachycardia [Not Recovered/Not Resolved]
  - Somnolence [Not Recovered/Not Resolved]
  - Drug ineffective [Unknown]
  - Apathy [Not Recovered/Not Resolved]
  - Tension headache [Not Recovered/Not Resolved]
  - Fatigue [Recovered/Resolved]
